FAERS Safety Report 10670553 (Version 1)
Quarter: 2014Q4

REPORT INFORMATION
  Report Type: Spontaneous
  Country: CA (occurrence: None)
  Receive Date: 20141219
  Receipt Date: 20141219
  Transmission Date: 20150529
  Serious: Yes (Hospitalization)
  Sender: FDA-Public Use
  Company Number: A1077221A

PATIENT
  Age: 34 Year
  Sex: Male

DRUGS (1)
  1. PAROXETINE HYDROCHLORIDE TABLET 20 MG [Suspect]
     Active Substance: PAROXETINE HYDROCHLORIDE
     Indication: ILL-DEFINED DISORDER
     Route: 048

REACTIONS (2)
  - Psychotic behaviour [None]
  - Suicidal ideation [None]
